FAERS Safety Report 4504571-6 (Version None)
Quarter: 2004Q4

REPORT INFORMATION
  Report Type: 
  Country: None (occurrence: None)
  Receive Date: 20041116
  Receipt Date: 20041103
  Transmission Date: 20050328
  Serious: Yes (Hospitalization, Other)
  Sender: FDA-Public Use
  Company Number: HQWYE242804NOV04

PATIENT
  Age: 65 Year
  Sex: Female
  Weight: 54.48 kg

DRUGS (7)
  1. PREMPRO [Suspect]
     Indication: DRUG USE FOR UNKNOWN INDICATION
     Dosage: 1 TABLET DAILY, ORAL
     Route: 048
     Dates: start: 19980101, end: 20021101
  2. PREMARIN [Suspect]
     Dosage: 1 TABLET DAILY (ORAL)
     Route: 048
     Dates: start: 19980101, end: 19980101
  3. LOTENSIN [Concomitant]
  4. KLOR-CON [Concomitant]
  5. AMARYL [Concomitant]
  6. FUROSEMIDE [Concomitant]
  7. ATENOLOL [Concomitant]

REACTIONS (8)
  - AMNESIA [None]
  - BREAST CANCER METASTATIC [None]
  - DEMENTIA [None]
  - DYSPHONIA [None]
  - FEELING ABNORMAL [None]
  - HYPERTROPHY BREAST [None]
  - NAUSEA [None]
  - WEIGHT FLUCTUATION [None]
